FAERS Safety Report 24675461 (Version 1)
Quarter: 2024Q4

REPORT INFORMATION
  Report Type: Spontaneous
  Country: CA (occurrence: CA)
  Receive Date: 20241128
  Receipt Date: 20241128
  Transmission Date: 20250115
  Serious: Yes (Other)
  Sender: CSL BEHRING
  Company Number: CA-BEH-2024186052

PATIENT
  Age: 32 Year
  Sex: Female

DRUGS (2)
  1. HUMAN C1-ESTERASE INHIBITOR [Suspect]
     Active Substance: HUMAN C1-ESTERASE INHIBITOR
     Indication: Hereditary angioedema
     Dosage: 1500 IU
     Route: 042
  2. ICATIBANT ACETATE [Suspect]
     Active Substance: ICATIBANT ACETATE
     Indication: Hereditary angioedema
     Dosage: UNK
     Route: 065

REACTIONS (5)
  - Malaise [Unknown]
  - Device ineffective [Unknown]
  - Prescribed overdose [Unknown]
  - Device issue [Unknown]
  - Product preparation issue [Unknown]
